FAERS Safety Report 9563381 (Version 1)
Quarter: 2013Q3

REPORT INFORMATION
  Report Type: Spontaneous
  Country: US (occurrence: US)
  Receive Date: 20130927
  Receipt Date: 20130927
  Transmission Date: 20140515
  Serious: Yes (Other)
  Sender: FDA-Public Use
  Company Number: US-FRI-1000049148

PATIENT
  Age: 66 Year
  Sex: Female
  Weight: 67 kg

DRUGS (29)
  1. DALIRESP [Suspect]
     Indication: CHRONIC OBSTRUCTIVE PULMONARY DISEASE
     Dosage: 500 MCG
     Route: 048
     Dates: start: 20130803, end: 20130830
  2. DALIRESP [Suspect]
     Indication: CHRONIC OBSTRUCTIVE PULMONARY DISEASE
     Dosage: 250 MCG
     Route: 048
     Dates: start: 20130905, end: 20130912
  3. VENTOLIN HFA [Concomitant]
     Indication: CHRONIC OBSTRUCTIVE PULMONARY DISEASE
  4. SPIRIVA [Concomitant]
     Indication: CHRONIC OBSTRUCTIVE PULMONARY DISEASE
  5. BUDESONIDE [Concomitant]
     Indication: CHRONIC OBSTRUCTIVE PULMONARY DISEASE
  6. THEOPHYLLINE [Concomitant]
     Indication: CHRONIC OBSTRUCTIVE PULMONARY DISEASE
     Dosage: 400 MG
     Route: 048
  7. METFORMIN [Concomitant]
     Indication: DIABETES MELLITUS
     Dosage: 1000 MG IN AM AND 500 MG IN PM
  8. GLIPIZIDE [Concomitant]
     Indication: DIABETES MELLITUS
     Dosage: 10 MG
  9. ZANAFLEX [Concomitant]
     Dosage: 8 MG
     Route: 048
  10. NORTRIPTYLINE [Concomitant]
     Indication: MIGRAINE
  11. LEVOXYL [Concomitant]
  12. FUROSEMIDE [Concomitant]
     Dosage: 40 MG
  13. RESTORIL [Concomitant]
     Indication: INSOMNIA
     Dosage: 30 MG
  14. DILTIAZEM ER [Concomitant]
     Dosage: 240 MG
  15. ASPIRIN [Concomitant]
     Dosage: 81 MG
     Route: 048
  16. PRILOSEC [Concomitant]
     Indication: GASTROOESOPHAGEAL REFLUX DISEASE
     Dosage: 40 MG
  17. CARAFATE [Concomitant]
     Dosage: 4 GRAMS
  18. VITAMIN E [Concomitant]
  19. CITRACAL [Concomitant]
     Dosage: 1200 MG
     Route: 048
  20. FISH OIL [Concomitant]
     Dosage: 2 GM
  21. PROBIOTIC [Concomitant]
  22. IRON [Concomitant]
     Indication: ANAEMIA
     Dosage: 65 MG
  23. VITAMIN B12 [Concomitant]
     Indication: ANAEMIA
     Dosage: 1000 MG
  24. NYSTATIN [Concomitant]
     Indication: ORAL MUCOSAL BLISTERING
     Dosage: QID
  25. ZOFRAN [Concomitant]
     Indication: NAUSEA
     Dosage: AS NEEDED
  26. ALLEGRA [Concomitant]
     Indication: HYPERSENSITIVITY
     Dosage: 180 MG
  27. VICODIN [Concomitant]
     Indication: PAIN
     Dosage: TID
  28. NOVOLOG [Concomitant]
     Indication: DIABETES MELLITUS
     Dosage: SLIDING SCALE
  29. BROVANA [Concomitant]
     Indication: CHRONIC OBSTRUCTIVE PULMONARY DISEASE

REACTIONS (6)
  - Blood glucose fluctuation [Recovered/Resolved]
  - Dyspnoea [Recovering/Resolving]
  - Insomnia [Recovered/Resolved]
  - Pollakiuria [Recovered/Resolved]
  - Nausea [Recovered/Resolved]
  - Pain [Recovered/Resolved]
